FAERS Safety Report 9934894 (Version 1)
Quarter: 2014Q1

REPORT INFORMATION
  Report Type: Spontaneous
  Country: US (occurrence: US)
  Receive Date: 20140228
  Receipt Date: 20140228
  Transmission Date: 20141002
  Serious: No
  Sender: FDA-Public Use
  Company Number: US-ASTRAZENECA-2013SE47154

PATIENT
  Sex: Female

DRUGS (4)
  1. TOPROL XL [Suspect]
     Route: 048
  2. TOPROL XL [Suspect]
     Dosage: 25 MG UNKNOWN FREQUENCY, GENERIC (MANUFACTURED BY DR. READY AND PAR)
     Route: 048
  3. TOPROL XL [Suspect]
     Dosage: 50 MG UNKNOWN FREQUENCY, GENERIC (MANUFACTURED BY DR. READY AND PAR)
     Route: 048
  4. TOPROL XL [Suspect]
     Route: 048

REACTIONS (1)
  - Drug intolerance [Unknown]
